FAERS Safety Report 25088113 (Version 1)
Quarter: 2025Q1

REPORT INFORMATION
  Report Type: Report from Study
  Country: IE (occurrence: IE)
  Receive Date: 20250318
  Receipt Date: 20250318
  Transmission Date: 20250409
  Serious: Yes (Other)
  Sender: ALEXION PHARMACEUTICALS
  Company Number: IE-ASTRAZENECA-202503EEA008812IE

PATIENT
  Age: 39 Year

DRUGS (15)
  1. BENRALIZUMAB [Suspect]
     Active Substance: BENRALIZUMAB
     Indication: Asthma
     Dosage: 30 MILLIGRAM, Q8W
  2. BENRALIZUMAB [Suspect]
     Active Substance: BENRALIZUMAB
     Dosage: 30 MILLIGRAM, Q8W
  3. BENRALIZUMAB [Suspect]
     Active Substance: BENRALIZUMAB
     Dosage: 30 MILLIGRAM, Q8W
  4. MOTILIUM [Concomitant]
     Active Substance: DOMPERIDONE
     Dosage: 10 MILLIGRAM, TID
     Route: 050
  5. VIMOVO [Concomitant]
     Active Substance: ESOMEPRAZOLE MAGNESIUM\NAPROXEN
     Dosage: 500 MILLIGRAM, BID
     Route: 050
  6. XANAX [Concomitant]
     Active Substance: ALPRAZOLAM
     Dosage: 500 MICROGRAM, BID
     Route: 050
  7. VENTOLIN [Concomitant]
     Active Substance: ALBUTEROL SULFATE
     Route: 050
  8. SPIRIVA [Concomitant]
     Active Substance: TIOTROPIUM BROMIDE MONOHYDRATE
     Dosage: 5 MICROGRAM, QD
     Route: 050
  9. SERETIDE [Concomitant]
     Active Substance: FLUTICASONE PROPIONATE\SALMETEROL XINAFOATE
     Dosage: 500 MICROGRAM, BID
     Route: 050
  10. Nexazole [Concomitant]
     Dosage: 40 MILLIGRAM, QD
     Route: 050
  11. Rinozal [Concomitant]
     Dosage: 10 MILLIGRAM, QD
     Route: 050
  12. MONTELUKAST [Concomitant]
     Active Substance: MONTELUKAST
     Dosage: 10 MILLIGRAM, QD
     Route: 050
  13. SALINE [Concomitant]
     Active Substance: SODIUM CHLORIDE
     Dosage: 4 MILLILITER, BID
     Route: 050
  14. ALBUTEROL [Concomitant]
     Active Substance: ALBUTEROL
     Dosage: 2.5 MILLILITER, BID
     Route: 050
  15. Mirap [Concomitant]
     Route: 050

REACTIONS (2)
  - Lower respiratory tract infection [Not Recovered/Not Resolved]
  - Inappropriate schedule of product administration [Unknown]
